FAERS Safety Report 12617454 (Version 1)
Quarter: 2016Q3

REPORT INFORMATION
  Report Type: Spontaneous
  Country: US (occurrence: US)
  Receive Date: 20160803
  Receipt Date: 20160803
  Transmission Date: 20161109
  Serious: Yes (Life-Threatening, Hospitalization)
  Sender: FDA-Public Use
  Company Number: US-AUROBINDO-AUR-APL-2016-09891

PATIENT
  Age: 56 Year
  Sex: Female

DRUGS (2)
  1. MOXIFLOXACIN. [Suspect]
     Active Substance: MOXIFLOXACIN
     Indication: STAPHYLOCOCCAL INFECTION
  2. MOXIFLOXACIN. [Suspect]
     Active Substance: MOXIFLOXACIN
     Indication: ENTEROBACTER INFECTION
     Dosage: UNK
     Route: 065

REACTIONS (1)
  - Drug ineffective [Unknown]
